FAERS Safety Report 4589416-0 (Version None)
Quarter: 2005Q1

REPORT INFORMATION
  Report Type: 
  Country: None (occurrence: None)
  Receive Date: 20050216
  Receipt Date: 20050201
  Transmission Date: 20050727
  Serious: Yes (Life-Threatening, Hospitalization)
  Sender: FDA-Public Use
  Company Number: 2004-BP-12394MX

PATIENT
  Sex: Male

DRUGS (1)
  1. MOBICOX (TA) (MELOXICAM) [Suspect]
     Indication: MYALGIA
     Dosage: 15 MG (15 MG, 1 TA O.D.)
     Route: 048

REACTIONS (2)
  - LEUKOCYTOCLASTIC VASCULITIS [None]
  - PURPURA [None]
